FAERS Safety Report 16786757 (Version 5)
Quarter: 2019Q4

REPORT INFORMATION
  Report Type: Spontaneous
  Country: JP (occurrence: JP)
  Receive Date: 20190909
  Receipt Date: 20191021
  Transmission Date: 20200122
  Serious: Yes (Hospitalization, Other)
  Sender: FDA-Public Use
  Company Number: JP-MALLINCKRODT-T201906187

PATIENT
  Age: 78 Year
  Sex: Male
  Weight: 80 kg

DRUGS (6)
  1. VITAMEDIN [Concomitant]
     Active Substance: CYANOCOBALAMIN\PYRIDOXINE HYDROCHLORIDE\THIAMINE
     Indication: PRODUCT USED FOR UNKNOWN INDICATION
     Dosage: UNK
     Route: 065
  2. MEROPENEM. [Concomitant]
     Active Substance: MEROPENEM
     Indication: HERPES ZOSTER
     Dosage: 1-2 BAGS DAILY
     Route: 065
  3. OFIRMEV [Suspect]
     Active Substance: ACETAMINOPHEN
     Dosage: 1000 MILLIGRAM, Q12H
     Route: 042
     Dates: start: 20190823, end: 20190825
  4. HISHIPHAGEN C [Concomitant]
     Indication: PRODUCT USED FOR UNKNOWN INDICATION
     Dosage: UNK
     Route: 065
  5. OFIRMEV [Suspect]
     Active Substance: ACETAMINOPHEN
     Indication: PAIN
     Dosage: 1000 MILLIGRAM, QD (1-2 BAGS DAILY )
     Route: 042
     Dates: start: 20190819, end: 201908
  6. SOLULACT [Concomitant]
     Indication: PRODUCT USED FOR UNKNOWN INDICATION
     Dosage: UNK
     Route: 041
     Dates: start: 20190819, end: 20190825

REACTIONS (2)
  - Hepatitis fulminant [Not Recovered/Not Resolved]
  - Hepatic failure [Recovering/Resolving]

NARRATIVE: CASE EVENT DATE: 20190825
